FAERS Safety Report 8354844-4 (Version None)
Quarter: 2012Q2

REPORT INFORMATION
  Report Type: 
  Country: None (occurrence: None)
  Receive Date: 20120511
  Receipt Date: 20120509
  Transmission Date: 20120825
  Serious: Yes (Life-Threatening, Hospitalization, Other)
  Sender: FDA-Public Use
  Company Number: JP-B.I. PHARMACEUTICALS,INC./RIDGEFIELD-2012-BP-01445NB

PATIENT
  Sex: Male
  Weight: 49.6 kg

DRUGS (6)
  1. DORIPENEM MONOHYDRATE [Suspect]
     Indication: PULMONARY ALVEOLAR HAEMORRHAGE
     Route: 065
     Dates: end: 20120206
  2. SUNRYTHM [Concomitant]
     Route: 065
     Dates: start: 20111129
  3. PRADAXA [Suspect]
     Indication: CEREBROVASCULAR ACCIDENT PROPHYLAXIS
     Dosage: 220 MG
     Route: 048
     Dates: start: 20111128, end: 20120122
  4. LENDEM D [Concomitant]
     Indication: INSOMNIA
     Dosage: 0.25 MG
     Route: 048
     Dates: start: 20111209, end: 20120122
  5. DILTIAZEM HCL [Concomitant]
     Dosage: 200 MG
     Route: 048
     Dates: start: 20111124
  6. RABEPRAZOLE SODIUM [Concomitant]
     Indication: GASTRITIS
     Dosage: 10 MG
     Route: 048
     Dates: start: 20111222, end: 20120122

REACTIONS (9)
  - GASTROINTESTINAL HAEMORRHAGE [None]
  - PNEUMOTHORAX [None]
  - HEPATIC ENZYME INCREASED [None]
  - JAUNDICE [None]
  - HEPATITIS C [None]
  - GASTRIC MUCOSAL LESION [None]
  - PULMONARY ALVEOLAR HAEMORRHAGE [None]
  - NASOPHARYNGITIS [None]
  - HYPERBILIRUBINAEMIA [None]
